FAERS Safety Report 26188252 (Version 1)
Quarter: 2025Q4

REPORT INFORMATION
  Report Type: Spontaneous
  Country: MX (occurrence: MX)
  Receive Date: 20251222
  Receipt Date: 20251222
  Transmission Date: 20260117
  Serious: Yes (Other)
  Sender: BAYER HEALTHCARE LLC
  Company Number: MX-BAYER-2025A167687

PATIENT

DRUGS (2)
  1. FLANAX [Suspect]
     Active Substance: NAPROXEN SODIUM
     Indication: Product used for unknown indication
     Dosage: 1 DF, QD, NO MORE THAN 7 DAYS
  2. NAPROXEN SODIUM [Suspect]
     Active Substance: NAPROXEN SODIUM
     Indication: Product used for unknown indication
     Dosage: 1 DF, QD, NO MORE THAN 7 DAYS

REACTIONS (2)
  - Gastric ulcer [Unknown]
  - Epigastric discomfort [Unknown]
